FAERS Safety Report 8266132-5 (Version None)
Quarter: 2012Q1

REPORT INFORMATION
  Report Type: 
  Country: None (occurrence: None)
  Receive Date: 20120327
  Receipt Date: 20100506
  Transmission Date: 20120608
  Serious: Yes (Other)
  Sender: FDA-Public Use
  Company Number: PHHY2010US28597

PATIENT
  Age: 38 Year
  Sex: Male

DRUGS (5)
  1. GLEEVEC [Suspect]
     Indication: ACUTE LYMPHOCYTIC LEUKAEMIA
     Dosage: 400;200 MG, DAILY, ORAL
     Route: 048
     Dates: start: 20100303, end: 20100407
  2. BACTRIUM (SULFAMETHOXAZOLE, TRIMETHOPRIM) [Concomitant]
  3. SANDIMMUNE [Suspect]
     Indication: PROPHYLAXIS
     Dosage: UNK, ORAL
     Route: 048
     Dates: start: 20091119
  4. ACYCLOVIR [Concomitant]
  5. FOLATE SODIUM (FOLATE SODIUM) [Concomitant]

REACTIONS (4)
  - PANCYTOPENIA [None]
  - OEDEMA PERIPHERAL [None]
  - BONE MARROW TRANSPLANT [None]
  - LABORATORY TEST ABNORMAL [None]
